FAERS Safety Report 15264481 (Version 4)
Quarter: 2018Q3

REPORT INFORMATION
  Report Type: Spontaneous
  Country: DE (occurrence: DE)
  Receive Date: 20180810
  Receipt Date: 20180926
  Transmission Date: 20181010
  Serious: Yes (Other)
  Sender: FDA-Public Use
  Company Number: PHHY2018DE064932

PATIENT
  Age: 22 Year
  Sex: Female

DRUGS (3)
  1. ETHINYLESTRADIOL [Interacting]
     Active Substance: ETHINYL ESTRADIOL
     Indication: ORAL CONTRACEPTION
  2. ETHINYLESTRADIOL [Interacting]
     Active Substance: ETHINYL ESTRADIOL
     Indication: DRUG DEPENDENCE
     Dosage: UNK
     Route: 048
  3. METHADONE [Suspect]
     Active Substance: METHADONE HYDROCHLORIDE
     Indication: DRUG DEPENDENCE
     Dosage: UNK
     Route: 065

REACTIONS (7)
  - Withdrawal syndrome [Recovered/Resolved]
  - Depressed mood [Unknown]
  - Drug interaction [Recovered/Resolved]
  - Abnormal dreams [Unknown]
  - Mydriasis [Unknown]
  - Drug dependence [Unknown]
  - Drug level decreased [Recovered/Resolved]
